FAERS Safety Report 8131671-4 (Version None)
Quarter: 2012Q1

REPORT INFORMATION
  Report Type: 
  Country: None (occurrence: None)
  Receive Date: 20120208
  Receipt Date: 20120130
  Transmission Date: 20120608
  Serious: Yes (Other)
  Sender: FDA-Public Use
  Company Number: 2012SP005663

PATIENT
  Sex: Female

DRUGS (3)
  1. RIBAVIRIN [Suspect]
     Indication: HEPATITIS C
  2. TELAPREVIR [Suspect]
     Indication: HEPATITIS C
  3. PEG-INTRON [Suspect]
     Indication: HEPATITIS C

REACTIONS (5)
  - EATING DISORDER [None]
  - ALOPECIA [None]
  - RASH GENERALISED [None]
  - ASCITES [None]
  - DIARRHOEA [None]
